FAERS Safety Report 12367173 (Version 2)
Quarter: 2016Q3

REPORT INFORMATION
  Report Type: Spontaneous
  Country: US (occurrence: US)
  Receive Date: 20160513
  Receipt Date: 20160715
  Transmission Date: 20161109
  Serious: Yes (Hospitalization)
  Sender: FDA-Public Use
  Company Number: US-BAYER-2016-087673

PATIENT
  Age: 44 Year
  Sex: Female
  Weight: 60.77 kg

DRUGS (4)
  1. PONSTEL [Concomitant]
     Active Substance: MEFENAMIC ACID
  2. IBUPROFEN. [Concomitant]
     Active Substance: IBUPROFEN
  3. PERCOCET [Concomitant]
     Active Substance: ACETAMINOPHEN\OXYCODONE HYDROCHLORIDE
     Dosage: UNK
  4. MIRENA [Suspect]
     Active Substance: LEVONORGESTREL
     Indication: CONTRACEPTION
     Dosage: 20 MCG/24HR, CONT
     Route: 015
     Dates: start: 20110726, end: 20140702

REACTIONS (5)
  - Complication of device removal [None]
  - Embedded device [None]
  - Device breakage [None]
  - Menorrhagia [None]
  - Injury [None]

NARRATIVE: CASE EVENT DATE: 20140513
